FAERS Safety Report 16682597 (Version 2)
Quarter: 2019Q4

REPORT INFORMATION
  Report Type: Spontaneous
  Country: US (occurrence: US)
  Receive Date: 20190808
  Receipt Date: 20191015
  Transmission Date: 20200122
  Serious: No
  Sender: FDA-Public Use
  Company Number: US-PFIZER INC-2019335482

PATIENT
  Sex: Female
  Weight: 75.74 kg

DRUGS (1)
  1. LEVOFLOXACIN. [Suspect]
     Active Substance: LEVOFLOXACIN
     Dosage: UNK

REACTIONS (3)
  - Periarthritis [Unknown]
  - Drug hypersensitivity [Unknown]
  - Neuralgia [Unknown]
